FAERS Safety Report 8554552-0 (Version None)
Quarter: 2012Q3

REPORT INFORMATION
  Report Type: 
  Country: None (occurrence: None)
  Receive Date: 20120726
  Receipt Date: 20120726
  Transmission Date: 20120928
  Serious: Yes (Disabling)
  Sender: FDA-Public Use
  Company Number: None

PATIENT
  Age: 42 Year
  Sex: Male
  Weight: 70.3075 kg

DRUGS (1)
  1. SODIUM HYALURONATE [Suspect]
     Indication: PATELLOFEMORAL PAIN SYNDROME
     Dosage: 2.5ML 1/WEEK-4 WEEKS ID
     Route: 023
     Dates: start: 20120202, end: 20120228

REACTIONS (4)
  - ABASIA [None]
  - GROIN PAIN [None]
  - MOVEMENT DISORDER [None]
  - PAIN IN EXTREMITY [None]
